FAERS Safety Report 8311840-0 (Version None)
Quarter: 2012Q2

REPORT INFORMATION
  Report Type: 
  Country: None (occurrence: None)
  Receive Date: 20120425
  Receipt Date: 20120423
  Transmission Date: 20120825
  Serious: Yes (Other)
  Sender: FDA-Public Use
  Company Number: US-PFIZER INC-2012100348

PATIENT
  Sex: Female
  Weight: 117.1 kg

DRUGS (5)
  1. CELEBREX [Suspect]
     Indication: ARTHRITIS
     Dosage: UNK, 1X/DAY
     Route: 048
     Dates: end: 20120401
  2. INSULIN [Concomitant]
     Indication: DIABETES MELLITUS
     Dosage: UNK
  3. LANTUS [Concomitant]
     Indication: DIABETES MELLITUS
     Dosage: UNK
  4. METFORMIN [Concomitant]
     Indication: DIABETES MELLITUS
     Dosage: UNK
  5. ACTOS [Concomitant]
     Indication: DIABETES MELLITUS
     Dosage: UNK

REACTIONS (2)
  - BACK PAIN [None]
  - PARKINSON'S DISEASE [None]
